FAERS Safety Report 10092623 (Version 1)
Quarter: 2014Q2

REPORT INFORMATION
  Report Type: Spontaneous
  Country: US (occurrence: US)
  Receive Date: 20140421
  Receipt Date: 20140421
  Transmission Date: 20141212
  Serious: No
  Sender: FDA-Public Use
  Company Number: US-009507513-1404USA009109

PATIENT
  Sex: 0

DRUGS (2)
  1. ISENTRESS [Suspect]
     Indication: HIV INFECTION
     Dosage: 400 MG/^ASSUMES AS INDICATED^, UNK
     Route: 048
     Dates: start: 2012
  2. KEPPRA [Concomitant]

REACTIONS (4)
  - Gastrointestinal disorder [Unknown]
  - Hypertrophy [Unknown]
  - Adverse event [Unknown]
  - Chest discomfort [Unknown]
